FAERS Safety Report 7024119-4 (Version None)
Quarter: 2010Q4

REPORT INFORMATION
  Report Type: 
  Country: None (occurrence: None)
  Receive Date: 20101001
  Receipt Date: 20100927
  Transmission Date: 20110411
  Serious: Yes (Death, Hospitalization, Other)
  Sender: FDA-Public Use
  Company Number: IT-ROCHE-591259

PATIENT

DRUGS (5)
  1. BEVACIZUMAB [Suspect]
     Dosage: INFUSION
     Route: 042
  2. IRINOTECAN HCL [Suspect]
     Dosage: INFUSION
     Route: 042
  3. OXALIPLATIN [Suspect]
     Dosage: INFUSION
     Route: 042
  4. FLUOROURACIL [Suspect]
     Dosage: INFUSION
     Route: 041
  5. LEUCOVORIN CALCIUM [Suspect]
     Dosage: INFUSION
     Route: 041

REACTIONS (17)
  - ACUTE MYOCARDIAL INFARCTION [None]
  - ANAEMIA [None]
  - ARTERIAL THROMBOSIS [None]
  - ASTHENIA [None]
  - DEATH [None]
  - DEEP VEIN THROMBOSIS [None]
  - DIARRHOEA [None]
  - FEBRILE NEUTROPENIA [None]
  - GASTROINTESTINAL HAEMORRHAGE [None]
  - HYPERTENSION [None]
  - LUNG INFECTION [None]
  - MYOCARDIAL ISCHAEMIA [None]
  - NAUSEA [None]
  - NEUROTOXICITY [None]
  - NEUTROPENIA [None]
  - STOMATITIS [None]
  - THROMBOCYTOPENIA [None]
